FAERS Safety Report 14868059 (Version 3)
Quarter: 2018Q2

REPORT INFORMATION
  Report Type: Spontaneous
  Country: US (occurrence: US)
  Receive Date: 20180509
  Receipt Date: 20180605
  Transmission Date: 20180711
  Serious: No
  Sender: FDA-Public Use
  Company Number: US-UNITED THERAPEUTICS-UNT-2018-004818

PATIENT
  Age: 41 Year
  Sex: Female
  Weight: 89.8 kg

DRUGS (5)
  1. REMODULIN [Suspect]
     Active Substance: TREPROSTINIL
     Indication: PULMONARY ARTERIAL HYPERTENSION
     Dosage: 0.080 ?G/KG, CONTINUING
     Route: 058
     Dates: start: 20160408
  2. ADCIRCA [Suspect]
     Active Substance: TADALAFIL
     Indication: PULMONARY ARTERIAL HYPERTENSION
     Dosage: UNK
     Route: 065
     Dates: start: 201803
  3. ORENITRAM [Suspect]
     Active Substance: TREPROSTINIL
     Indication: PULMONARY ARTERIAL HYPERTENSION
     Dosage: 12.5 MG, TID
     Route: 048
     Dates: start: 20180507
  4. OPSUMIT [Concomitant]
     Active Substance: MACITENTAN
     Indication: PRODUCT USED FOR UNKNOWN INDICATION
     Route: 065
  5. ORENITRAM [Suspect]
     Active Substance: TREPROSTINIL
     Dosage: UNK
     Route: 048

REACTIONS (12)
  - Pain in jaw [Unknown]
  - Myalgia [Unknown]
  - Nausea [Not Recovered/Not Resolved]
  - Gastroenteritis viral [Not Recovered/Not Resolved]
  - Abdominal pain upper [Unknown]
  - Pain in extremity [Not Recovered/Not Resolved]
  - Peripheral swelling [Unknown]
  - Arthralgia [Unknown]
  - Flushing [Unknown]
  - Headache [Not Recovered/Not Resolved]
  - Joint swelling [Unknown]
  - Decreased appetite [Unknown]

NARRATIVE: CASE EVENT DATE: 201803
